FAERS Safety Report 13159156 (Version 1)
Quarter: 2017Q1

REPORT INFORMATION
  Report Type: Report from Study
  Country: US (occurrence: US)
  Receive Date: 20170127
  Receipt Date: 20170127
  Transmission Date: 20170428
  Serious: Yes (Hospitalization)
  Sender: FDA-Public Use
  Company Number: US-GLAXOSMITHKLINE-US2017009377

PATIENT
  Age: 69 Year
  Sex: Male
  Weight: 96.1 kg

DRUGS (5)
  1. BLINDED PLACEBO [Suspect]
     Active Substance: INVESTIGATIONAL PRODUCT
     Indication: TYPE 2 DIABETES MELLITUS
     Dosage: 30 MG, WE
     Route: 058
     Dates: start: 20160127, end: 20160302
  2. VALIUM [Interacting]
     Active Substance: DIAZEPAM
     Indication: MAJOR DEPRESSION
     Route: 048
     Dates: start: 20150312, end: 20161231
  3. BLINDED ALBIGLUTIDE [Suspect]
     Active Substance: ALBIGLUTIDE
     Indication: TYPE 2 DIABETES MELLITUS
     Dosage: 30 MG, WE
     Route: 058
     Dates: start: 20160127, end: 20160302
  4. SOMA [Interacting]
     Active Substance: CARISOPRODOL
     Indication: MAJOR DEPRESSION
     Route: 048
     Dates: start: 2016, end: 20161231
  5. WELLBUTRIN [Suspect]
     Active Substance: BUPROPION HYDROCHLORIDE
     Indication: MAJOR DEPRESSION
     Route: 048
     Dates: start: 20161220, end: 20170101

REACTIONS (1)
  - Mental status changes [Recovered/Resolved]

NARRATIVE: CASE EVENT DATE: 20161231
